FAERS Safety Report 6993589-X (Version None)
Quarter: 2010Q3

REPORT INFORMATION
  Report Type: 
  Country: None (occurrence: None)
  Receive Date: 20100917
  Receipt Date: 20100910
  Transmission Date: 20110219
  Serious: Yes (Hospitalization)
  Sender: FDA-Public Use
  Company Number: PHHO2010US14033

PATIENT
  Sex: Female

DRUGS (4)
  1. TRILEPTAL [Suspect]
  2. BLINDED FTY 720 FTY+CAP [Suspect]
     Indication: MULTIPLE SCLEROSIS
     Dosage: CODE NOT BROKEN
     Route: 048
     Dates: start: 20100511
  3. BLINDED NO TREATMENT RECEIVED NOMED [Suspect]
     Indication: MULTIPLE SCLEROSIS
     Dosage: CODE NOT BROKEN
     Route: 048
     Dates: start: 20100511
  4. BLINDED PLACEBO COMP-PLA+ [Suspect]
     Indication: MULTIPLE SCLEROSIS
     Dosage: CODE NOT BROKEN
     Route: 048
     Dates: start: 20100511

REACTIONS (2)
  - INTENTIONAL OVERDOSE [None]
  - VOMITING [None]
